FAERS Safety Report 11120302 (Version 3)
Quarter: 2015Q2

REPORT INFORMATION
  Report Type: Spontaneous
  Country: RU (occurrence: RU)
  Receive Date: 20150518
  Receipt Date: 20150622
  Transmission Date: 20150821
  Serious: Yes (Other)
  Sender: FDA-Public Use
  Company Number: RU-ABBVIE-15P-251-1393415-00

PATIENT
  Age: 13 Year
  Sex: Female

DRUGS (1)
  1. DEPAKINE ENTERIC [Suspect]
     Active Substance: VALPROATE SODIUM
     Indication: SEIZURE
     Route: 048
     Dates: start: 201504, end: 201504

REACTIONS (4)
  - Seizure [Recovered/Resolved]
  - Product counterfeit [Unknown]
  - Wrong technique in drug usage process [Unknown]
  - Drug ineffective [Unknown]
